FAERS Safety Report 15548885 (Version 1)
Quarter: 2018Q4

REPORT INFORMATION
  Report Type: Spontaneous
  Country: US (occurrence: US)
  Receive Date: 20181025
  Receipt Date: 20181025
  Transmission Date: 20190205
  Serious: No
  Sender: FDA-Public Use
  Company Number: US-TEVA-2018-US-873072

PATIENT
  Age: 12 Year
  Sex: Male

DRUGS (4)
  1. XYREM [Concomitant]
     Active Substance: SODIUM OXYBATE
     Indication: NARCOLEPSY
     Dosage: 4.5 G/DAY; IN TWO EQUALLY DIVIDED DOSES
     Route: 065
  2. XYREM [Concomitant]
     Active Substance: SODIUM OXYBATE
     Indication: NARCOLEPSY
     Dosage: 6 G/DAY
     Route: 065
  3. MODAFINIL. [Suspect]
     Active Substance: MODAFINIL
     Indication: NARCOLEPSY
     Dosage: 200 MG DAILY; IN TWO EQUALLY DIVIDED DOSES
     Route: 065
  4. XYREM [Concomitant]
     Active Substance: SODIUM OXYBATE
     Indication: NARCOLEPSY
     Dosage: 7 G/DAY (AS 3 AND 4 G)
     Route: 065

REACTIONS (2)
  - Palpitations [Unknown]
  - Anxiety [Unknown]
